FAERS Safety Report 17184947 (Version 1)
Quarter: 2019Q4

REPORT INFORMATION
  Report Type: Spontaneous
  Country: US (occurrence: US)
  Receive Date: 20191127
  Receipt Date: 20191127
  Transmission Date: 20200122
  Serious: Yes (Other)
  Sender: FDA-Public Use
  Company Number: None

PATIENT
  Sex: Female

DRUGS (11)
  1. TOPAMAX [Concomitant]
     Active Substance: TOPIRAMATE
  2. OXYCODONE AND ACETAMINOPHEN [Concomitant]
     Active Substance: ACETAMINOPHEN\OXYCODONE HYDROCHLORIDE
  3. TOPAMAX [Concomitant]
     Active Substance: TOPIRAMATE
  4. ZOFRAN [Concomitant]
     Active Substance: ONDANSETRON HYDROCHLORIDE
  5. LOTEPREDNOL [Concomitant]
     Active Substance: LOTEPREDNOL
  6. PREDNISONE. [Concomitant]
     Active Substance: PREDNISONE
  7. CIMZIA [Suspect]
     Active Substance: CERTOLIZUMAB PEGOL
     Indication: RHEUMATOID ARTHRITIS
     Dosage: 2 SYRS Q4WKS SQ?
     Route: 058
     Dates: start: 20181216
  8. FLUOROURACIL. [Concomitant]
     Active Substance: FLUOROURACIL
  9. FOLIC ACID. [Concomitant]
     Active Substance: FOLIC ACID
  10. LEVALBUTEROL. [Concomitant]
     Active Substance: LEVALBUTEROL
  11. PROTONIX [Concomitant]
     Active Substance: PANTOPRAZOLE SODIUM

REACTIONS (1)
  - Skin cancer [None]
